FAERS Safety Report 19694051 (Version 1)
Quarter: 2021Q3

REPORT INFORMATION
  Report Type: Spontaneous
  Country: DE (occurrence: DE)
  Receive Date: 20210813
  Receipt Date: 20210813
  Transmission Date: 20211014
  Serious: Yes (Hospitalization)
  Sender: FDA-Public Use
  Company Number: DE-TEVA-2021-DE-1940756

PATIENT
  Age: 43 Year
  Sex: Female
  Weight: 40 kg

DRUGS (5)
  1. NOVAMIN [Concomitant]
     Dosage: 2000 MILLIGRAM DAILY; 1?1?1?1
  2. CISPLATIN. [Suspect]
     Active Substance: CISPLATIN
     Dosage: LAST 03102019
  3. PEMBROLIZUMAB. [Suspect]
     Active Substance: PEMBROLIZUMAB
     Dosage: LAST 03102019
  4. PEMETREXED. [Suspect]
     Active Substance: PEMETREXED
     Dosage: LAST 03102019
  5. PANTOPRAZOL [Concomitant]
     Active Substance: PANTOPRAZOLE SODIUM
     Dosage: 40 MILLIGRAM DAILY; 1?0?0?0

REACTIONS (5)
  - Nausea [Unknown]
  - Abdominal pain [Unknown]
  - General physical health deterioration [Unknown]
  - Abdominal pain upper [Unknown]
  - Vomiting [Unknown]
